FAERS Safety Report 26099599 (Version 1)
Quarter: 2025Q4

REPORT INFORMATION
  Report Type: Spontaneous
  Country: US (occurrence: US)
  Receive Date: 20251128
  Receipt Date: 20251128
  Transmission Date: 20260117
  Serious: Yes (Other)
  Sender: COOPERSURGICAL
  Company Number: US-COOPERSURGICAL, INC.-2025CPS008218

PATIENT
  Age: 42 Year
  Sex: Female
  Weight: 79.365 kg

DRUGS (1)
  1. PARAGARD T 380A [Suspect]
     Active Substance: COPPER
     Indication: Contraception
     Dosage: UNK
     Route: 015
     Dates: start: 20111212

REACTIONS (15)
  - Reproductive complication associated with device [Unknown]
  - Device breakage [Recovered/Resolved]
  - Foreign body in urogenital tract [Recovered/Resolved]
  - Complication of device removal [Recovered/Resolved]
  - Coital bleeding [Unknown]
  - Emotional distress [Unknown]
  - Abdominal pain lower [Unknown]
  - Pain [Unknown]
  - Bacterial vaginosis [Unknown]
  - Menstruation irregular [Unknown]
  - Heavy menstrual bleeding [Recovered/Resolved]
  - Muscle spasms [Unknown]
  - Pelvic pain [Unknown]
  - Dysmenorrhoea [Unknown]
  - Device expulsion [Unknown]

NARRATIVE: CASE EVENT DATE: 20180111
